FAERS Safety Report 5121433-4 (Version None)
Quarter: 2006Q4

REPORT INFORMATION
  Report Type: 
  Country: None (occurrence: None)
  Receive Date: 20061002
  Receipt Date: 20060918
  Transmission Date: 20070319
  Serious: Yes (Hospitalization, Other)
  Sender: FDA-Public Use
  Company Number: US200605006417

PATIENT
  Age: 28 Year
  Sex: Male
  Weight: 86.2 kg

DRUGS (3)
  1. ZYPREXA [Suspect]
     Dates: start: 19980101, end: 19990101
  2. DEPAKOTE [Concomitant]
  3. LOPRESSOR [Concomitant]

REACTIONS (4)
  - CARDIAC DISORDER [None]
  - DIABETES MELLITUS [None]
  - DIABETIC KETOACIDOSIS [None]
  - OBESITY [None]
